FAERS Safety Report 8325460-5 (Version None)
Quarter: 2012Q2

REPORT INFORMATION
  Report Type: 
  Country: None (occurrence: None)
  Receive Date: 20120427
  Receipt Date: 20120412
  Transmission Date: 20120825
  Serious: Yes (Other)
  Sender: FDA-Public Use
  Company Number: 20120211

PATIENT
  Age: 55 Year
  Sex: Male

DRUGS (6)
  1. ALLOPURINOL [Concomitant]
  2. DEXAMETHASONE SODIUM PHOSPHATE [Suspect]
     Indication: GOUT
     Dosage: 2 MG INTRA-ARTICULAR
     Route: 014
     Dates: start: 20110317, end: 20110317
  3. LIDOCAINE 1% INJ [Suspect]
     Indication: GOUT
     Dosage: 2 CC INTRA-ARTICULAR
     Route: 013
     Dates: start: 20110317, end: 20110317
  4. DOXYCYCLINE [Concomitant]
  5. TRETINOIN [Concomitant]
  6. LIDOCAINE 1% INJ [Suspect]
     Indication: NERVE BLOCK
     Dosage: 1 CC UNKNOWN
     Dates: start: 20110317, end: 20110317

REACTIONS (10)
  - ARTHRALGIA [None]
  - INJECTION SITE PRURITUS [None]
  - JOINT SWELLING [None]
  - GRANULOMA [None]
  - SENSATION OF FOREIGN BODY [None]
  - PRODUCT QUALITY ISSUE [None]
  - PAIN IN EXTREMITY [None]
  - OEDEMA PERIPHERAL [None]
  - SKIN IRRITATION [None]
  - INJECTION SITE RASH [None]
